FAERS Safety Report 15602671 (Version 2)
Quarter: 2019Q2

REPORT INFORMATION
  Report Type: Spontaneous
  Country: US (occurrence: US)
  Receive Date: 20181109
  Receipt Date: 20190507
  Transmission Date: 20190711
  Serious: Yes (Other)
  Sender: FDA-Public Use
  Company Number: US-SA-2018SA075109

PATIENT
  Age: 60 Year
  Sex: Female
  Weight: 81.96 kg

DRUGS (17)
  1. NIFEDIPINE. [Concomitant]
     Active Substance: NIFEDIPINE
  2. DOCETAXEL. [Suspect]
     Active Substance: DOCETAXEL
     Dosage: 143 MG, Q3W
     Route: 042
     Dates: start: 20160411, end: 20160411
  3. CYTOXAN [Concomitant]
     Active Substance: CYCLOPHOSPHAMIDE
  4. FAMOTIDINE. [Concomitant]
     Active Substance: FAMOTIDINE
  5. METOPROLOL. [Concomitant]
     Active Substance: METOPROLOL
  6. DEXAMETHASONE. [Concomitant]
     Active Substance: DEXAMETHASONE
  7. FOSAPREPITANT [Concomitant]
     Active Substance: FOSAPREPITANT
  8. ASPIRINE [Concomitant]
     Active Substance: ASPIRIN
  9. VICTOZA [Concomitant]
     Active Substance: LIRAGLUTIDE
  10. PEGFILGRASTIM [Concomitant]
     Active Substance: PEGFILGRASTIM
  11. ARIMIDEX [Concomitant]
     Active Substance: ANASTROZOLE
  12. NEOSAR [Concomitant]
     Active Substance: CYCLOPHOSPHAMIDE
  13. CYCLOPHOSPHAMIDE. [Concomitant]
     Active Substance: CYCLOPHOSPHAMIDE
  14. DIPHENHYDRAMINE. [Concomitant]
     Active Substance: DIPHENHYDRAMINE
  15. DOCETAXEL. [Suspect]
     Active Substance: DOCETAXEL
     Indication: BREAST CANCER FEMALE
     Dosage: 143 MG, Q3W
     Route: 042
     Dates: start: 20160127, end: 20160127
  16. PALONOSETRON. [Concomitant]
     Active Substance: PALONOSETRON HYDROCHLORIDE
  17. CYCLOBENZAPRINE. [Concomitant]
     Active Substance: CYCLOBENZAPRINE

REACTIONS (6)
  - Alopecia [Recovering/Resolving]
  - Impaired quality of life [Unknown]
  - Pain [Unknown]
  - Psychological trauma [Unknown]
  - Anxiety [Unknown]
  - Emotional distress [Unknown]

NARRATIVE: CASE EVENT DATE: 20160411
